FAERS Safety Report 6054949-7 (Version None)
Quarter: 2009Q1

REPORT INFORMATION
  Report Type: 
  Country: None (occurrence: None)
  Receive Date: 20090128
  Receipt Date: 20090127
  Transmission Date: 20090719
  Serious: Yes (Death, Other)
  Sender: FDA-Public Use
  Company Number: PHHY2009CA02524

PATIENT
  Sex: Female

DRUGS (4)
  1. CLOZARIL [Suspect]
     Indication: SCHIZOPHRENIA
     Dosage: 225 MG, UNK
     Route: 048
     Dates: start: 20090121, end: 20090122
  2. ZIPRASIDONE [Concomitant]
  3. CLOPIXOL DEPOT [Concomitant]
  4. ANTIPSYCHOTICS [Concomitant]

REACTIONS (3)
  - ABNORMAL BEHAVIOUR [None]
  - LOSS OF CONSCIOUSNESS [None]
  - UPPER GASTROINTESTINAL HAEMORRHAGE [None]
